FAERS Safety Report 5081976-9 (Version None)
Quarter: 2006Q3

REPORT INFORMATION
  Report Type: 
  Country: None (occurrence: None)
  Receive Date: 20060811
  Receipt Date: 20060808
  Transmission Date: 20061208
  Serious: Yes (Death, Hospitalization, Other)
  Sender: FDA-Public Use
  Company Number: THQ2006A00290

PATIENT
  Age: 77 Year
  Sex: Male

DRUGS (8)
  1. LEUPROLIDE ACETATE [Suspect]
     Indication: PROSTATE CANCER
     Dosage: 22.5 MG (22.5 MG, 1 IN 3 M)
     Dates: start: 20051108, end: 20060214
  2. ZOLEDRONIC ACID [Concomitant]
  3. NITRATE PATCH (GLYCERYL TRINITRATE) (POULTICE OR PATCH) [Concomitant]
  4. ASPIRIN [Concomitant]
  5. CELECOXIB [Concomitant]
  6. ALBUTEROL SPIROS [Concomitant]
  7. NICORANDIL [Concomitant]
  8. VASOCARDOL CD (DILTIAZEM HYDROCHLORIDE) [Concomitant]

REACTIONS (18)
  - ASCITES [None]
  - ATELECTASIS [None]
  - BACTERIAL INFECTION [None]
  - BILE DUCT CANCER [None]
  - BILE DUCT STENOSIS [None]
  - BILIARY SEPSIS [None]
  - CELLULITIS [None]
  - CHOLELITHIASIS [None]
  - ENTEROBACTER INFECTION [None]
  - GENERAL PHYSICAL HEALTH DETERIORATION [None]
  - HEPATIC ENCEPHALOPATHY [None]
  - HEPATIC FAILURE [None]
  - HEPATIC MASS [None]
  - HYPOTENSION [None]
  - LIVER ABSCESS [None]
  - PULMONARY OEDEMA [None]
  - RESPIRATORY FAILURE [None]
  - SINUS TACHYCARDIA [None]
